FAERS Safety Report 11983577 (Version 1)
Quarter: 2016Q1

REPORT INFORMATION
  Report Type: Spontaneous
  Country: US (occurrence: US)
  Receive Date: 20160201
  Receipt Date: 20160201
  Transmission Date: 20160526
  Serious: Yes (Other)
  Sender: FDA-Public Use
  Company Number: US-LPDUSPRD-20160027

PATIENT
  Age: 83 Year
  Sex: Female

DRUGS (11)
  1. ASPIRIN EC [Concomitant]
     Active Substance: ASPIRIN
     Dosage: 325 MG
     Route: 048
  2. LACTOBACILLUS EXTRA STRENGTH CAPS [Concomitant]
     Dosage: 1 CAP TWICE A DAY
     Route: 048
  3. FUROSEMIDE. [Concomitant]
     Active Substance: FUROSEMIDE
     Dosage: 40 MG; 1 TAB DAILY
     Route: 048
  4. VANCOCIN HCL [Concomitant]
     Dosage: 250 MG; 1 CAP 3 X DAY
     Route: 048
  5. CALCITRIOL. [Concomitant]
     Active Substance: CALCITRIOL
     Dosage: 0.25 MCG; 1 DF MON/WED/FRI
     Route: 048
     Dates: start: 20151226
  6. AMLODIPINE BESY-BENAZEPRIL HCL [Concomitant]
     Dosage: 5-20 MG; 1 CAPSULE DAILY
     Route: 048
  7. VITAMIN D 3 [Concomitant]
     Dosage: 1000 UNIT; 1 CAP DAILY
     Route: 048
  8. VENOFER [Suspect]
     Active Substance: IRON SUCROSE
     Dosage: 300 MG IN 30 MINUTES
     Route: 042
     Dates: start: 20160111, end: 20160111
  9. FISH OIL [Concomitant]
     Active Substance: FISH OIL
     Dosage: 1200 MG; 1 CAP DAILY
     Route: 048
  10. METOPROLOL SUCCINATE ER [Concomitant]
     Active Substance: METOPROLOL SUCCINATE
     Dosage: 50 MG; 1 TAB TWICE DAILY
     Route: 048
  11. CRESTOR [Concomitant]
     Active Substance: ROSUVASTATIN CALCIUM
     Dosage: 10 MG; 1 TAB DAILY
     Route: 048
     Dates: start: 20130115

REACTIONS (5)
  - Drug hypersensitivity [Unknown]
  - Oedema peripheral [Unknown]
  - Incorrect drug administration rate [Recovered/Resolved]
  - Urticaria [Unknown]
  - Pruritus [Unknown]

NARRATIVE: CASE EVENT DATE: 20160104
